FAERS Safety Report 5484139-8 (Version None)
Quarter: 2007Q4

REPORT INFORMATION
  Report Type: 
  Country: None (occurrence: None)
  Receive Date: 20071009
  Receipt Date: 20071009
  Transmission Date: 20080405
  Serious: Yes (Death)
  Sender: FDA-Public Use
  Company Number: None

PATIENT
  Sex: Female
  Weight: 112 kg

DRUGS (1)
  1. METFORMIN [Suspect]
     Indication: DIABETES MELLITUS
     Dosage: 1000 MG Q AM PO 500 MG Q PM PO
     Route: 048

REACTIONS (3)
  - JAUNDICE [None]
  - METABOLIC ACIDOSIS [None]
  - SEPSIS [None]
